FAERS Safety Report 6937628-0 (Version None)
Quarter: 2010Q3

REPORT INFORMATION
  Report Type: 
  Country: None (occurrence: None)
  Receive Date: 20100823
  Receipt Date: 20100809
  Transmission Date: 20110219
  Serious: Yes (Hospitalization)
  Sender: FDA-Public Use
  Company Number: US-GILEAD-2010-0030241

PATIENT
  Sex: Female
  Weight: 89.892 kg

DRUGS (40)
  1. LETAIRIS [Suspect]
     Indication: PULMONARY ARTERIAL HYPERTENSION
     Route: 048
     Dates: start: 20080923
  2. VENTAVIS [Suspect]
     Indication: PULMONARY ARTERIAL HYPERTENSION
     Route: 055
     Dates: start: 20090901, end: 20100528
  3. VENTAVIS [Suspect]
     Dates: start: 20090108, end: 20090901
  4. REVATIO [Concomitant]
  5. OXYGEN [Concomitant]
  6. METOLAZONE [Concomitant]
  7. LASIX [Concomitant]
  8. XOPENEX [Concomitant]
  9. ADVAIR DISKUS 100/50 [Concomitant]
  10. SPIRIVA [Concomitant]
  11. FLUTICASONE/SALBUTEROL [Concomitant]
  12. AMLODIPINE BESYLATE [Concomitant]
  13. FOSINOPRIL SODIUM [Concomitant]
  14. ARANESP [Concomitant]
  15. GLIMEPIRIDE [Concomitant]
  16. JANUVIA [Concomitant]
  17. COLCHICINE [Concomitant]
  18. ALLOPURINOL [Concomitant]
  19. PHENOBARBITAL [Concomitant]
  20. ELAVIL [Concomitant]
  21. BONIVA [Concomitant]
  22. PRILOSEC [Concomitant]
  23. ZOCOR [Concomitant]
  24. PRANDIN [Concomitant]
  25. OPTIVE [Concomitant]
  26. RESTASIS [Concomitant]
  27. ULTRAM [Concomitant]
  28. ZITHROMAX [Concomitant]
  29. NEURONTIN [Concomitant]
  30. CLONIDINE HCL [Concomitant]
  31. LEVOXYL [Concomitant]
  32. DEEP SEA [Concomitant]
  33. MAG-OX [Concomitant]
  34. VITAMIN D [Concomitant]
  35. FERROUS SULFATE [Concomitant]
  36. RANITIDINE [Concomitant]
  37. ELESTAT [Concomitant]
  38. EZEMTIMBE/SIMVASTATIN [Concomitant]
  39. CLONIDINE [Concomitant]
  40. PANTOPRAZOLE [Concomitant]

REACTIONS (1)
  - LIVER DISORDER [None]
